FAERS Safety Report 22297250 (Version 1)
Quarter: 2023Q2

REPORT INFORMATION
  Report Type: Spontaneous
  Country: US (occurrence: US)
  Receive Date: 20230509
  Receipt Date: 20230509
  Transmission Date: 20230721
  Serious: Yes (Death, Other)
  Sender: FDA-Public Use
  Company Number: US-BRISTOL-MYERS SQUIBB COMPANY-2023-065140

PATIENT
  Age: 91 Year
  Sex: Female

DRUGS (1)
  1. THALOMID [Suspect]
     Active Substance: THALIDOMIDE
     Indication: Myelodysplastic syndrome
     Dosage: LOT EXPIRATION DATE: 31-JAN-2026
     Route: 048
     Dates: start: 20211213

REACTIONS (1)
  - Death [Fatal]

NARRATIVE: CASE EVENT DATE: 20221111
